FAERS Safety Report 21674544 (Version 1)
Quarter: 2022Q4

REPORT INFORMATION
  Report Type: Spontaneous
  Country: US (occurrence: None)
  Receive Date: 20221201
  Receipt Date: 20221201
  Transmission Date: 20230113
  Serious: No
  Sender: FDA-Public Use
  Company Number: None

PATIENT
  Age: 33 Year
  Sex: Female
  Weight: 58.05 kg

DRUGS (9)
  1. SERTRALINE [Suspect]
     Active Substance: SERTRALINE HYDROCHLORIDE
     Indication: Depression
     Dosage: OTHER QUANTITY : 2 TABLET(S)?
     Route: 048
     Dates: start: 20180404
  2. SERTRALINE [Suspect]
     Active Substance: SERTRALINE HYDROCHLORIDE
     Indication: Anxiety
  3. BUSPAR [Concomitant]
     Active Substance: BUSPIRONE HYDROCHLORIDE
  4. Aderall [Concomitant]
  5. LORAZEPAM [Concomitant]
     Active Substance: LORAZEPAM
  6. IBUPROFEN [Concomitant]
     Active Substance: IBUPROFEN
  7. My Brain! Supplement by Eu Naturals [Concomitant]
  8. TUMS [Concomitant]
     Active Substance: CALCIUM CARBONATE
  9. ROLAIDS [Concomitant]
     Active Substance: CALCIUM CARBONATE\MAGNESIUM HYDROXIDE

REACTIONS (14)
  - Product odour abnormal [None]
  - Product taste abnormal [None]
  - Product solubility abnormal [None]
  - Oral discomfort [None]
  - Oesophageal pain [None]
  - Nausea [None]
  - Tremor [None]
  - Retching [None]
  - Discoloured vomit [None]
  - Pyrexia [None]
  - Nausea [None]
  - Pain [None]
  - Chills [None]
  - Product substitution issue [None]

NARRATIVE: CASE EVENT DATE: 20221201
